FAERS Safety Report 8048779-4 (Version None)
Quarter: 2012Q1

REPORT INFORMATION
  Report Type: 
  Country: None (occurrence: None)
  Receive Date: 20120117
  Receipt Date: 20120109
  Transmission Date: 20120608
  Serious: Yes (Congenital Anomaly)
  Sender: FDA-Public Use
  Company Number: US-UCBSA-049393

PATIENT
  Sex: Male
  Weight: 3.545 kg

DRUGS (3)
  1. PROZAC [Concomitant]
     Route: 064
     Dates: start: 20050109, end: 20050224
  2. KEPPRA [Suspect]
     Indication: EPILEPSY
     Dosage: DOSE: 1000
     Route: 064
     Dates: start: 20040601, end: 20050224
  3. ALLEGRA [Concomitant]
     Indication: HYPERSENSITIVITY
     Route: 064

REACTIONS (3)
  - CRYPTORCHISM [None]
  - INGUINAL HERNIA [None]
  - FOETAL EXPOSURE DURING PREGNANCY [None]
